FAERS Safety Report 17424664 (Version 2)
Quarter: 2020Q1

REPORT INFORMATION
  Report Type: Report from Study
  Country: IT (occurrence: IT)
  Receive Date: 20200217
  Receipt Date: 20200303
  Transmission Date: 20200409
  Serious: Yes (Other)
  Sender: FDA-Public Use
  Company Number: IT-GLAXOSMITHKLINE-IT2020024608

PATIENT
  Age: 35 Year
  Sex: Female

DRUGS (2)
  1. VIVIN C [Suspect]
     Active Substance: ASCORBIC ACID\ASPIRIN
     Indication: TENDERNESS
     Dosage: 2 DF, SINGLE, IN TOTAL
     Route: 048
     Dates: start: 20190101, end: 20190101
  2. DICLOFENAC SODIUM. [Suspect]
     Active Substance: DICLOFENAC SODIUM
     Indication: PAIN
     Dosage: 1 DF, SINGLE, IN TOTAL
     Route: 048
     Dates: start: 20190101, end: 20190101

REACTIONS (1)
  - Angioedema [Recovering/Resolving]

NARRATIVE: CASE EVENT DATE: 20190101
